FAERS Safety Report 11341204 (Version 1)
Quarter: 2015Q3

REPORT INFORMATION
  Report Type: Spontaneous
  Country: US (occurrence: None)
  Receive Date: 20150803
  Receipt Date: 20150803
  Transmission Date: 20151125
  Serious: Yes (Life-Threatening, Hospitalization, Disabling, Other)
  Sender: FDA-Public Use
  Company Number: None

PATIENT
  Age: 58 Year
  Sex: Male
  Weight: 122.47 kg

DRUGS (11)
  1. ABILIFY [Suspect]
     Active Substance: ARIPIPRAZOLE
     Indication: MANIA
     Route: 030
     Dates: start: 20150601, end: 20150802
  2. SEROQUEL [Suspect]
     Active Substance: QUETIAPINE FUMARATE
     Dosage: 1 PILL ONCE DAILY TAKEN BY MOUTH
     Route: 048
     Dates: start: 20150215, end: 20150802
  3. OXCARBAZEPIN [Concomitant]
     Active Substance: OXCARBAZEPINE
  4. MULTI-VITAMIN [Concomitant]
     Active Substance: .ALPHA.-TOCOPHEROL ACETATE, DL-\ASCORBIC ACID\CYANOCOBALAMIN\FLUORIDE ION\FOLIC ACID\NIACIN\PYRIDOXINE\RIBOFLAVIN\THIAMINE\VITAMIN A\VITAMIN D
  5. TAMSULOSIN [Concomitant]
     Active Substance: TAMSULOSIN
  6. PRAMIPEXOLE. [Concomitant]
     Active Substance: PRAMIPEXOLE
  7. QUETIAPINE [Concomitant]
     Active Substance: QUETIAPINE
  8. LEVOTHYROX [Concomitant]
     Active Substance: LEVOTHYROXINE
  9. ABILIFY [Suspect]
     Active Substance: ARIPIPRAZOLE
     Indication: BIPOLAR DISORDER
     Route: 030
     Dates: start: 20150601, end: 20150802
  10. BENZTROPINE [Concomitant]
     Active Substance: BENZTROPINE
  11. DICLOFEN [Concomitant]
     Active Substance: DICLOFENAC SODIUM

REACTIONS (2)
  - Legal problem [None]
  - Loss of consciousness [None]

NARRATIVE: CASE EVENT DATE: 20150211
